FAERS Safety Report 14715524 (Version 2)
Quarter: 2018Q2

REPORT INFORMATION
  Report Type: Spontaneous
  Country: DE (occurrence: DE)
  Receive Date: 20180404
  Receipt Date: 20180509
  Transmission Date: 20180711
  Serious: Yes (Hospitalization, Other)
  Sender: FDA-Public Use
  Company Number: DE-TAKEDA-2018TUS008151

PATIENT
  Age: 39 Year
  Sex: Male
  Weight: 63 kg

DRUGS (3)
  1. METHOTREXATE. [Concomitant]
     Active Substance: METHOTREXATE
     Indication: CROHN^S DISEASE
     Dosage: 20 MG, 1/WEEK
     Dates: start: 2014, end: 201711
  2. ENTYVIO [Suspect]
     Active Substance: VEDOLIZUMAB
     Indication: CROHN^S DISEASE
     Dosage: 300 MG, UNK
     Route: 042
     Dates: start: 201504, end: 201711
  3. PREDNISOLONE. [Concomitant]
     Active Substance: PREDNISOLONE
     Indication: CROHN^S DISEASE
     Dosage: 7.5 MG, QD
     Dates: start: 201504, end: 201803

REACTIONS (2)
  - Colon neoplasm [Not Recovered/Not Resolved]
  - Rectal cancer [Unknown]

NARRATIVE: CASE EVENT DATE: 20170714
